FAERS Safety Report 8462342-2 (Version None)
Quarter: 2012Q2

REPORT INFORMATION
  Report Type: 
  Country: None (occurrence: None)
  Receive Date: 20120618
  Receipt Date: 20120602
  Transmission Date: 20120825
  Serious: Yes (Other)
  Sender: FDA-Public Use
  Company Number: 2012AP001716

PATIENT
  Age: 54 Year
  Sex: Male

DRUGS (1)
  1. OMEPRAZOLE [Suspect]
     Indication: PRODUCT USED FOR UNKNOWN INDICATION

REACTIONS (6)
  - HYPOMAGNESAEMIA [None]
  - BLOOD PARATHYROID HORMONE DECREASED [None]
  - MALAISE [None]
  - DIARRHOEA [None]
  - GAIT DISTURBANCE [None]
  - BLOOD CALCIUM DECREASED [None]
